FAERS Safety Report 9703036 (Version 11)
Quarter: 2015Q3

REPORT INFORMATION
  Report Type: Spontaneous
  Country: DE (occurrence: DE)
  Receive Date: 20131122
  Receipt Date: 20150804
  Transmission Date: 20151125
  Serious: Yes (Life-Threatening, Hospitalization, Disabling, Other)
  Sender: FDA-Public Use
  Company Number: DE-BEH-2013038577

PATIENT
  Sex: Male
  Weight: 12.6 kg

DRUGS (25)
  1. BIOSTATE [Concomitant]
     Dates: start: 20130702
  2. NOVOSEVEN [Concomitant]
     Active Substance: COAGULATION FACTOR VIIA RECOMBINANT HUMAN
     Route: 042
     Dates: start: 20131017, end: 20131017
  3. NOVOSEVEN [Concomitant]
     Active Substance: COAGULATION FACTOR VIIA RECOMBINANT HUMAN
     Route: 042
     Dates: start: 20131017, end: 20131018
  4. NOVOSEVEN [Concomitant]
     Active Substance: COAGULATION FACTOR VIIA RECOMBINANT HUMAN
     Route: 042
     Dates: start: 20131018, end: 20131018
  5. CEFUROXIM [Concomitant]
     Active Substance: CEFUROXIME
     Indication: ADVERSE EVENT
     Route: 042
     Dates: start: 20131019, end: 20131027
  6. HAEMATE [Suspect]
     Active Substance: ANTIHEMOPHILIC FACTOR HUMAN
  7. NOVOSEVEN [Concomitant]
     Active Substance: COAGULATION FACTOR VIIA RECOMBINANT HUMAN
     Route: 042
     Dates: start: 20131016, end: 20131017
  8. NOVOSEVEN [Concomitant]
     Active Substance: COAGULATION FACTOR VIIA RECOMBINANT HUMAN
     Route: 042
     Dates: start: 20131018, end: 20131029
  9. KEPPRA [Concomitant]
     Active Substance: LEVETIRACETAM
     Route: 042
     Dates: start: 20131021, end: 20131028
  10. KEPPRA [Concomitant]
     Active Substance: LEVETIRACETAM
     Indication: SEIZURE
     Dosage: STOP DATE: ONGOING
     Route: 048
     Dates: start: 20131028
  11. PCM [Concomitant]
     Indication: PAIN
     Route: 048
     Dates: start: 20131021, end: 20131023
  12. IBUPROFEN. [Concomitant]
     Active Substance: IBUPROFEN
     Indication: PAIN
     Route: 048
     Dates: start: 20131023, end: 20131029
  13. FEIBA [Concomitant]
     Active Substance: ANTI-INHIBITOR COAGULANT COMPLEX
     Route: 042
     Dates: start: 20131018, end: 20131018
  14. ANTRA [Concomitant]
     Active Substance: OMEPRAZOLE
     Indication: DRUG THERAPY
     Route: 042
     Dates: start: 20131021, end: 20131029
  15. BIOSTATE [Concomitant]
     Indication: HAEMOPHILIA A WITH ANTI FACTOR VIII
     Dates: start: 20130115
  16. NOVOSEVEN [Concomitant]
     Active Substance: COAGULATION FACTOR VIIA RECOMBINANT HUMAN
     Route: 042
     Dates: start: 20131015, end: 20131016
  17. URBASON [Concomitant]
     Active Substance: METHYLPREDNISOLONE
     Route: 042
     Dates: start: 20131024, end: 20131025
  18. URBASON [Concomitant]
     Active Substance: METHYLPREDNISOLONE
     Indication: PROPHYLAXIS
     Route: 042
     Dates: start: 20131025, end: 20131027
  19. BIOSTATE [Concomitant]
     Route: 042
     Dates: start: 20130902
  20. ZYVOXID [Concomitant]
     Active Substance: LINEZOLID
     Indication: DEVICE RELATED INFECTION
     Route: 042
     Dates: start: 20130614, end: 20130629
  21. HAEMATE [Suspect]
     Active Substance: ANTIHEMOPHILIC FACTOR HUMAN
     Indication: IMMUNE TOLERANCE INDUCTION
     Dosage: SINCE THE LAST DOSE OF BIOSTATE ON 02-SEP-2013 AT 19:05 TREATMENT WITH HAEMATE
     Route: 042
     Dates: start: 20130903, end: 20131018
  22. HAEMATE [Suspect]
     Active Substance: ANTIHEMOPHILIC FACTOR HUMAN
  23. URBASON [Concomitant]
     Active Substance: METHYLPREDNISOLONE
     Route: 042
     Dates: start: 20131018, end: 20131024
  24. CLINDAMYCIN [Concomitant]
     Active Substance: CLINDAMYCIN\CLINDAMYCIN PHOSPHATE
     Indication: DEVICE RELATED INFECTION
     Route: 042
     Dates: start: 20130614, end: 20130629
  25. SALBUTAMOL [Concomitant]
     Active Substance: ALBUTEROL
     Indication: EXTUBATION
     Route: 055
     Dates: start: 20131022, end: 20131022

REACTIONS (5)
  - Hydrocephalus [Not Recovered/Not Resolved]
  - Mouth haemorrhage [Recovered/Resolved]
  - Carotid artery stenosis [Not Recovered/Not Resolved]
  - Treatment failure [Unknown]
  - Ischaemic stroke [Recovered/Resolved with Sequelae]

NARRATIVE: CASE EVENT DATE: 20131017
